FAERS Safety Report 7487417 (Version 3)
Quarter: 2014Q1

REPORT INFORMATION
  Report Type: Report from Study
  Country: JP (occurrence: JP)
  Receive Date: 20100719
  Receipt Date: 20140130
  Transmission Date: 20141002
  Serious: Yes (Life-Threatening, Hospitalization)
  Sender: FDA-Public Use
  Company Number: PHHY2010JP43002

PATIENT
  Age: 75 Year
  Sex: Female

DRUGS (57)
  1. AMN107 [Suspect]
     Indication: CHRONIC MYELOID LEUKAEMIA
     Dosage: 200 MG, DAILY
     Route: 048
     Dates: start: 20091005, end: 20091206
  2. AMN107 [Suspect]
     Dosage: 200 MG, DAILY
     Route: 048
     Dates: start: 20100105, end: 20100208
  3. AMN107 [Suspect]
     Dosage: 800 MG, DAILY
     Route: 048
     Dates: start: 20100209, end: 20100407
  4. DIOVAN [Concomitant]
     Indication: HYPERTENSION
     Dosage: 80 MG, UNK
     Route: 048
     Dates: start: 20091117
  5. TAKEPRON [Concomitant]
     Indication: PROPHYLAXIS
     Dosage: 30 MG, UNK
     Route: 048
     Dates: start: 20090813
  6. LAC B [Concomitant]
     Indication: PROPHYLAXIS
     Dosage: 3 G, UNK
     Route: 048
     Dates: start: 20090813
  7. MUCOSTA [Concomitant]
     Indication: PROPHYLAXIS
     Dosage: 300 MG, UNK
     Route: 048
     Dates: start: 20090813
  8. LOPERAMIDE HYDROCHLORIDE [Concomitant]
     Dosage: 2 MG, UNK
     Route: 048
     Dates: start: 20091012, end: 20091117
  9. CODEINE PHOSPHATE [Concomitant]
     Dosage: 0.9 G, UNK
     Route: 048
     Dates: start: 20091029, end: 20091117
  10. ANTEBATE [Concomitant]
     Indication: PROPHYLAXIS
     Dosage: UNK
     Dates: start: 20091110
  11. KENALOG [Concomitant]
     Dosage: UNK
     Dates: start: 20091111
  12. HYALEIN [Concomitant]
     Dosage: UNK
     Route: 047
     Dates: start: 20091124
  13. NORVASC [Concomitant]
     Dosage: 2.5 MG, UNK
     Route: 048
     Dates: start: 20091222
  14. GEBEN [Concomitant]
     Dosage: UNK
     Dates: start: 20091222
  15. SANTESON [Concomitant]
     Dosage: UNK
     Dates: start: 20100105
  16. LASIX [Concomitant]
     Indication: HYPERTENSION
     Dosage: 20 MG, UNK
     Route: 048
     Dates: start: 20100105
  17. THROMBIN [Concomitant]
     Indication: PROPHYLAXIS
     Dosage: 40000 IU, UNK
     Route: 048
     Dates: start: 20090813, end: 20090902
  18. ALLOID [Concomitant]
     Indication: PROPHYLAXIS
     Dosage: 160 ML, UNK
     Route: 048
     Dates: start: 20090813, end: 20090916
  19. LOPERAMIDE HYDROCHLORIDE [Concomitant]
     Dosage: 2 MG, UNK
     Route: 048
     Dates: start: 20091012, end: 20091117
  20. ZYLORIC [Concomitant]
     Dosage: 200 MG, UNK
     Route: 048
     Dates: start: 20100210
  21. SOLDEM 3A [Concomitant]
     Dosage: 500 ML, UNK
     Route: 041
     Dates: start: 20100210
  22. SOLDEM 1 [Concomitant]
     Dosage: 500 ML, UNK
     Route: 041
     Dates: start: 20100210
  23. MEYLON [Concomitant]
     Dosage: 20 ML, UNK
     Route: 041
     Dates: start: 20100210
  24. SPRYCEL [Concomitant]
     Indication: CHRONIC MYELOID LEUKAEMIA
     Dosage: 100 MG, DAILY
     Route: 048
     Dates: start: 20090630, end: 20090720
  25. PREDNISOLONE [Concomitant]
     Indication: PROPHYLAXIS
     Dosage: 5 MG, UNK
     Route: 048
  26. MYSLEE [Concomitant]
     Indication: HYPERTENSION
     Dosage: 5 MG, UNK
     Route: 048
  27. BAKTAR [Concomitant]
     Indication: PROPHYLAXIS
     Route: 048
  28. ADALAT [Concomitant]
     Dosage: 20 MG, UNK
     Route: 048
  29. APHTHASEAL S [Concomitant]
     Dosage: 1 DF, UNK
  30. LOXONIN [Concomitant]
     Dosage: 60 MG, UNK
     Route: 048
  31. NEOLAMIN 3B                        /00520001/ [Concomitant]
     Dosage: 10 ML, UNK
  32. PHYSIO 35 [Concomitant]
     Dosage: 500 ML, UNK
  33. MAXIPIME [Concomitant]
     Dosage: 2 G, UNK
  34. FUNGUARD [Concomitant]
     Dosage: 50 MG, UNK
  35. SUCCIN [Concomitant]
     Dosage: 100 MG, UNK
  36. OMEPRAL [Concomitant]
     Dosage: 20 MG, UNK
  37. SAXIZON [Concomitant]
     Dosage: 100 MG, UNK
  38. VANCOMYCIN [Concomitant]
     Dosage: 1 G, UNK
  39. BFLUID [Concomitant]
     Dosage: 500 ML, UNK
  40. NEUTROGIN [Concomitant]
     Dosage: 250 UG, UNK
  41. NEUTROGIN [Concomitant]
     Dosage: 100 UG, UNK
  42. ASPARA POTASSIUM [Concomitant]
     Dosage: 10 ML, UNK
  43. SOLDACTONE [Concomitant]
     Dosage: 100 MG, UNK
  44. ZOSYN [Concomitant]
     Dosage: 2.25 G, UNK
  45. KETOPROFEN [Concomitant]
     Dosage: 1 DF, UNK
  46. GENTACIN [Concomitant]
     Dosage: 10 G, UNK
  47. FULCALIQ [Concomitant]
     Dosage: 903 ML, UNK
  48. FULCALIQ [Concomitant]
     Dosage: 1003 ML, UNK
  49. SOSEGON [Concomitant]
     Dosage: 15 MG, UNK
  50. ELEMENMIC [Concomitant]
     Dosage: 2 ML, UNK
  51. ALLELOCK [Concomitant]
     Dosage: 10 MG, UNK
     Route: 048
  52. TAMIFLU [Concomitant]
     Dosage: 150 MG, UNK
     Route: 048
  53. SELTOUCH [Concomitant]
     Dosage: 1 DF, UNK
  54. MEROPEN [Concomitant]
     Dosage: 0.5 G, UNK
  55. CRAVIT [Concomitant]
     Dosage: 500 MG, UNK
     Route: 048
  56. RINDERON VG [Concomitant]
     Dosage: 5 G, UNK
  57. ISODINE GARGLE [Concomitant]
     Dosage: 30 ML, UNK

REACTIONS (4)
  - Blast crisis in myelogenous leukaemia [Not Recovered/Not Resolved]
  - Platelet count decreased [Not Recovered/Not Resolved]
  - Lipase increased [Recovered/Resolved]
  - Blood urea increased [Not Recovered/Not Resolved]
